FAERS Safety Report 8063677-8 (Version None)
Quarter: 2011Q4

REPORT INFORMATION
  Report Type: 
  Country: None (occurrence: None)
  Receive Date: 20111220
  Receipt Date: 20111019
  Transmission Date: 20120403
  Serious: Yes (Other)
  Sender: FDA-Public Use
  Company Number: US023213

PATIENT
  Sex: Female
  Weight: 3 kg

DRUGS (4)
  1. FENUGREEK [Concomitant]
  2. PRENATAL VITAMIN (TABLET) [Concomitant]
  3. ACTIQ [Suspect]
     Indication: SYSTEMIC LUPUS ERYTHEMATOSUS
     Dosage: 800 MCG (400 MCG, 2 IN 1 D), TRANSPLACENTAL, 1200 MCG (400 MCG, 3 IN 1 D), TRANSMAMMARY
     Route: 064
     Dates: start: 20040601, end: 20050328
  4. ACTIQ [Suspect]
     Indication: SYSTEMIC LUPUS ERYTHEMATOSUS
     Dosage: 800 MCG (400 MCG, 2 IN 1 D), TRANSPLACENTAL, 1200 MCG (400 MCG, 3 IN 1 D), TRANSMAMMARY
     Route: 064
     Dates: start: 20050328

REACTIONS (2)
  - EXPOSURE DURING BREAST FEEDING [None]
  - JAUNDICE NEONATAL [None]
